FAERS Safety Report 7031353-6 (Version None)
Quarter: 2010Q4

REPORT INFORMATION
  Report Type: 
  Country: None (occurrence: None)
  Receive Date: 20101006
  Receipt Date: 20100927
  Transmission Date: 20110411
  Serious: Yes (Hospitalization, Other)
  Sender: FDA-Public Use
  Company Number: US-TYCO HEALTHCARE/MALLINCKRODT-T201002061

PATIENT
  Age: 62 Year
  Sex: Female

DRUGS (2)
  1. PENNSAID [Suspect]
     Indication: ARTHRITIS
     Dosage: 40 DROPS, QID
     Route: 061
     Dates: end: 20100910
  2. VOLTAREN [Concomitant]

REACTIONS (4)
  - ABDOMINAL PAIN UPPER [None]
  - DEHYDRATION [None]
  - STAPHYLOCOCCAL INFECTION [None]
  - STEVENS-JOHNSON SYNDROME [None]
